FAERS Safety Report 9203201 (Version 1)
Quarter: 2013Q1

REPORT INFORMATION
  Report Type: Spontaneous
  Country: BR (occurrence: None)
  Receive Date: 20130328
  Receipt Date: 20130328
  Transmission Date: 20140127
  Serious: Yes (Other)
  Sender: FDA-Public Use
  Company Number: VAL_02259_2013

PATIENT
  Age: 13 Year
  Sex: Female
  Weight: 72 kg

DRUGS (1)
  1. METHERGINE [Suspect]
     Indication: PRODUCT USED FOR UNKNOWN INDICATION
     Dosage: DF (TOOK ALMOST ALL THE TABLETS OF BLISTER OF METHERGINE 0.125 MG [NOT PRESCRIBED AMOUNT]]
     Dates: start: 20130320

REACTIONS (2)
  - Intentional drug misuse [None]
  - Maternal exposure during pregnancy [None]
